FAERS Safety Report 13429774 (Version 1)
Quarter: 2017Q2

REPORT INFORMATION
  Report Type: Spontaneous
  Country: US (occurrence: US)
  Receive Date: 20170412
  Receipt Date: 20170412
  Transmission Date: 20170830
  Serious: No
  Sender: FDA-Public Use
  Company Number: US-009507513-1704USA003255

PATIENT
  Age: 25 Year
  Sex: Female
  Weight: 60.77 kg

DRUGS (1)
  1. NEXPLANON [Suspect]
     Active Substance: ETONOGESTREL
     Indication: CONTRACEPTION
     Dosage: 1 DF, EVERY 3 YEARS (LEFT ARM IMPLANT)
     Dates: start: 20160413

REACTIONS (4)
  - Weight increased [Unknown]
  - Amenorrhoea [Recovered/Resolved]
  - Menstruation irregular [Unknown]
  - Mood swings [Unknown]

NARRATIVE: CASE EVENT DATE: 2017
